FAERS Safety Report 24292085 (Version 1)
Quarter: 2024Q3

REPORT INFORMATION
  Report Type: Spontaneous
  Country: US (occurrence: None)
  Receive Date: 20240906
  Receipt Date: 20240906
  Transmission Date: 20241017
  Serious: No
  Sender: DOMPE FARMACEUTICI
  Company Number: US-FARMAPROD-202009-1263

PATIENT
  Age: 69 Year
  Sex: Female
  Weight: 51.71 kg

DRUGS (9)
  1. OXERVATE [Suspect]
     Active Substance: CENEGERMIN-BKBJ
     Indication: Neurotrophic keratopathy
     Route: 047
     Dates: start: 20200914, end: 202009
  2. OXERVATE [Suspect]
     Active Substance: CENEGERMIN-BKBJ
     Route: 047
     Dates: start: 20231124
  3. OXERVATE [Suspect]
     Active Substance: CENEGERMIN-BKBJ
  4. DOXYCYCLINE HYCLATE [Concomitant]
     Active Substance: DOXYCYCLINE HYCLATE
  5. DEPLIN-ALGAL [Concomitant]
     Dosage: 15 MG -90.314 MG
  6. VIIBRYD [Concomitant]
     Active Substance: VILAZODONE HYDROCHLORIDE
  7. ZOLPIDEM TARTRATE [Concomitant]
     Active Substance: ZOLPIDEM TARTRATE
  8. LORAZEPAM [Concomitant]
     Active Substance: LORAZEPAM
  9. PREDNISONE [Concomitant]
     Active Substance: PREDNISONE
     Dosage: DOSE PACK.

REACTIONS (6)
  - Eye pain [Unknown]
  - Eye inflammation [Unknown]
  - Eye swelling [Unknown]
  - Product dose omission issue [Not Recovered/Not Resolved]
  - Hordeolum [Unknown]
  - Eye irritation [Unknown]

NARRATIVE: CASE EVENT DATE: 20231124
